FAERS Safety Report 8124205-1 (Version None)
Quarter: 2012Q1

REPORT INFORMATION
  Report Type: 
  Country: None (occurrence: None)
  Receive Date: 20120209
  Receipt Date: 20120202
  Transmission Date: 20120608
  Serious: Yes (Other)
  Sender: FDA-Public Use
  Company Number: US-BRISTOL-MYERS SQUIBB COMPANY-16381535

PATIENT
  Age: 50 Year
  Sex: Male
  Weight: 82 kg

DRUGS (3)
  1. CETUXIMAB [Suspect]
     Indication: NON-SMALL CELL LUNG CANCER
     Dosage: 400 MG/M2 LOAD DOSE:D 1 OF CYC 1 ONLY,250 MG/M2:D1,8,22,29,36 OF CYCLE 1,D1,8,15,22,29,36 OF CYC 2
     Route: 042
     Dates: start: 20100208, end: 20100208
  2. PACLITAXEL [Suspect]
     Indication: NON-SMALL CELL LUNG CANCER
     Dosage: ON DAY 1 ND 22
     Route: 042
     Dates: start: 20100208, end: 20100310
  3. CARBOPLATIN [Suspect]
     Indication: NON-SMALL CELL LUNG CANCER
     Dosage: 1DF:6AUC ON DAY 1 AND 22
     Route: 042
     Dates: start: 20100208, end: 20100310

REACTIONS (2)
  - ARTHRALGIA [None]
  - ORAL PAIN [None]
